FAERS Safety Report 19983698 (Version 1)
Quarter: 2021Q4

REPORT INFORMATION
  Report Type: Spontaneous
  Country: AE (occurrence: AE)
  Receive Date: 20211022
  Receipt Date: 20211022
  Transmission Date: 20220303
  Serious: Yes (Other)
  Sender: FDA-Public Use
  Company Number: AE-MLMSERVICE-20211007-3152859-1

PATIENT
  Age: 86 Year
  Sex: Male

DRUGS (3)
  1. CLOPIDOGREL [Suspect]
     Active Substance: CLOPIDOGREL BISULFATE
     Indication: Product used for unknown indication
  2. ESOMEPRAZOLE. [Concomitant]
     Active Substance: ESOMEPRAZOLE MAGNESIUM
  3. METOPROLOL [Concomitant]
     Active Substance: METOPROLOL

REACTIONS (3)
  - Hallucination, tactile [Unknown]
  - Hallucination, visual [Unknown]
  - Delusion [Unknown]
